FAERS Safety Report 4932389-9 (Version None)
Quarter: 2006Q1

REPORT INFORMATION
  Report Type: 
  Country: None (occurrence: None)
  Receive Date: 20060301
  Receipt Date: 20060220
  Transmission Date: 20060701
  Serious: Yes (Other)
  Sender: FDA-Public Use
  Company Number: GXKR2006DE01036

PATIENT
  Age: 40 Year
  Sex: Male

DRUGS (1)
  1. METOPROLOL SUCCINATE [Suspect]
     Indication: BLOOD PRESSURE INCREASED
     Dosage: 47.5 MG, ORAL
     Route: 048
     Dates: start: 20051118, end: 20051205

REACTIONS (2)
  - RHABDOMYOLYSIS [None]
  - SHOULDER PAIN [None]
